FAERS Safety Report 6682662-1 (Version None)
Quarter: 2010Q2

REPORT INFORMATION
  Report Type: 
  Country: None (occurrence: None)
  Receive Date: 20100415
  Receipt Date: 20100406
  Transmission Date: 20101027
  Serious: Yes (Other)
  Sender: FDA-Public Use
  Company Number: US-WYE-H14470810

PATIENT
  Age: 76 Year
  Sex: Male

DRUGS (6)
  1. CORDARONE [Suspect]
     Indication: ATRIAL FIBRILLATION
     Dosage: NOT PROVIDED
     Dates: start: 20091222, end: 20100116
  2. NIACIN [Concomitant]
  3. PLAVIX [Concomitant]
  4. LOVASTATIN [Concomitant]
  5. MULTAQ [Suspect]
     Indication: ATRIAL FIBRILLATION
     Route: 048
     Dates: start: 20100116, end: 20100309
  6. LOTREL [Concomitant]

REACTIONS (1)
  - AMAUROSIS FUGAX [None]
